FAERS Safety Report 21162611 (Version 1)
Quarter: 2022Q3

REPORT INFORMATION
  Report Type: Spontaneous
  Country: US (occurrence: None)
  Receive Date: 20220802
  Receipt Date: 20220802
  Transmission Date: 20221027
  Serious: Yes (Life-Threatening)
  Sender: FDA-Public Use
  Company Number: None

PATIENT
  Age: 67 Year
  Sex: Male
  Weight: 84 kg

DRUGS (2)
  1. ROCEPHIN [Suspect]
     Active Substance: CEFTRIAXONE SODIUM
     Indication: Sepsis
     Dosage: FREQUENCY : ONCE;?
     Route: 042
     Dates: start: 20220613, end: 20220613
  2. SODIUM CHLORIDE [Suspect]
     Active Substance: SODIUM CHLORIDE
     Dosage: FREQUENCY : ONCE;?
     Route: 042
     Dates: start: 20220613, end: 20220613

REACTIONS (9)
  - Leukocytosis [None]
  - Hyponatraemia [None]
  - Acute kidney injury [None]
  - Hyperglycaemia [None]
  - Lymphadenitis [None]
  - Cardiac arrest [None]
  - Pulseless electrical activity [None]
  - Ventricular tachycardia [None]
  - Sepsis [None]

NARRATIVE: CASE EVENT DATE: 20220613
